FAERS Safety Report 18386245 (Version 1)
Quarter: 2020Q4

REPORT INFORMATION
  Report Type: Spontaneous
  Country: US (occurrence: US)
  Receive Date: 20201015
  Receipt Date: 20201015
  Transmission Date: 20210114
  Serious: No
  Sender: FDA-Public Use
  Company Number: US-MYLANLABS-2020M1075525

PATIENT
  Sex: Male

DRUGS (1)
  1. CLONIDINE. [Suspect]
     Active Substance: CLONIDINE
     Indication: HYPERTENSION
     Dosage: UNK UNK, Q4H(EVERY 4 HOURS)
     Route: 048

REACTIONS (3)
  - Product administration error [Unknown]
  - Drug ineffective [Unknown]
  - Blood pressure increased [Unknown]
